FAERS Safety Report 14776759 (Version 1)
Quarter: 2018Q2

REPORT INFORMATION
  Report Type: Spontaneous
  Country: US (occurrence: US)
  Receive Date: 20180419
  Receipt Date: 20180419
  Transmission Date: 20180711
  Serious: No
  Sender: FDA-Public Use
  Company Number: US-UNITED THERAPEUTICS-UNT-2018-005363

PATIENT
  Age: 57 Year
  Sex: Female
  Weight: 63.49 kg

DRUGS (1)
  1. REMODULIN [Suspect]
     Active Substance: TREPROSTINIL
     Indication: PULMONARY ARTERIAL HYPERTENSION
     Dosage: 0.02 ?G/KG, CONTINUING
     Route: 058
     Dates: start: 20140709

REACTIONS (4)
  - Flushing [Recovered/Resolved]
  - Pain [Unknown]
  - Device damage [Unknown]
  - Palpitations [Unknown]

NARRATIVE: CASE EVENT DATE: 20180414
